FAERS Safety Report 10021498 (Version 1)
Quarter: 2014Q1

REPORT INFORMATION
  Report Type: Spontaneous
  Country: US (occurrence: None)
  Receive Date: 20140318
  Receipt Date: 20140318
  Transmission Date: 20141002
  Serious: Yes (Other)
  Sender: FDA-Public Use
  Company Number: None

PATIENT
  Age: 58 Year
  Sex: Male
  Weight: 99.79 kg

DRUGS (2)
  1. OMEPRAZOLE [Suspect]
     Indication: GASTROOESOPHAGEAL REFLUX DISEASE
     Dosage: 1 TABLET
     Route: 048
     Dates: start: 20140313, end: 20140314
  2. OMEPRAZOLE [Suspect]
     Indication: DYSPEPSIA
     Dosage: 1 TABLET
     Route: 048
     Dates: start: 20140313, end: 20140314

REACTIONS (4)
  - Product substitution issue [None]
  - Product quality issue [None]
  - Dyspepsia [None]
  - No therapeutic response [None]
